FAERS Safety Report 11348971 (Version 3)
Quarter: 2016Q1

REPORT INFORMATION
  Report Type: Spontaneous
  Country: FR (occurrence: FR)
  Receive Date: 20150807
  Receipt Date: 20160229
  Transmission Date: 20160525
  Serious: Yes (Life-Threatening)
  Sender: FDA-Public Use
  Company Number: FR-HOSPIRA-2960681

PATIENT
  Age: 76 Year
  Sex: Female

DRUGS (11)
  1. ATRACURIUM BESILATE [Suspect]
     Active Substance: ATRACURIUM BESYLATE
     Indication: PRODUCT USED FOR UNKNOWN INDICATION
     Dosage: SINGLE DOSE, ONCE
     Route: 042
     Dates: start: 20150710, end: 20150710
  2. SUFENTANIL MERCK [Suspect]
     Active Substance: SUFENTANIL
     Indication: PRODUCT USED FOR UNKNOWN INDICATION
     Dosage: SINGLE DOSE, ONCE
     Route: 042
     Dates: start: 20150710, end: 20150710
  3. PROPOFOL. [Suspect]
     Active Substance: PROPOFOL
     Indication: ANAESTHESIA
     Dosage: SINGLE DOSE, ONCE
     Route: 042
     Dates: start: 20150710, end: 20150710
  4. CEFAMANDOLE [Suspect]
     Active Substance: CEFAMANDOLE
     Indication: PRODUCT USED FOR UNKNOWN INDICATION
     Dosage: SINGLE DOSE
     Route: 042
     Dates: start: 20150710, end: 20150710
  5. DROLEPTAN [Suspect]
     Active Substance: DROPERIDOL
     Indication: ANALGESIC THERAPY
     Route: 042
     Dates: start: 20150710, end: 20150710
  6. SUPRANE [Suspect]
     Active Substance: DESFLURANE
     Indication: PRODUCT USED FOR UNKNOWN INDICATION
     Route: 055
     Dates: start: 20150710, end: 20150710
  7. KETAMINE RENAUDIN [Suspect]
     Active Substance: KETAMINE
     Indication: PRODUCT USED FOR UNKNOWN INDICATION
     Dosage: SINGLE DOSE, ONCE
     Route: 042
     Dates: start: 20150710, end: 20150710
  8. EXACYL [Suspect]
     Active Substance: TRANEXAMIC ACID
     Indication: PRODUCT USED FOR UNKNOWN INDICATION
     Route: 042
     Dates: start: 20150710, end: 20150710
  9. ACUPAN [Suspect]
     Active Substance: NEFOPAM HYDROCHLORIDE
     Indication: POSTOPERATIVE ANALGESIA
     Dosage: SINGLE DOSE, ONCE
     Route: 042
     Dates: start: 20150710, end: 20150710
  10. MORPHINE [Suspect]
     Active Substance: MORPHINE
     Indication: ANALGESIC THERAPY
     Route: 042
     Dates: start: 20150710, end: 20150710
  11. DOLIPRANE [Concomitant]
     Active Substance: ACETAMINOPHEN
     Indication: PRODUCT USED FOR UNKNOWN INDICATION

REACTIONS (7)
  - Pulmonary embolism [Unknown]
  - Respiratory disorder [Unknown]
  - Intensive care unit acquired weakness [Unknown]
  - Renal failure [Unknown]
  - Gastrointestinal obstruction [Unknown]
  - Septic necrosis [Unknown]
  - Pancreatitis [Recovered/Resolved]

NARRATIVE: CASE EVENT DATE: 20150710
